FAERS Safety Report 9519283 (Version 1)
Quarter: 2013Q3

REPORT INFORMATION
  Report Type: Spontaneous
  Country: US (occurrence: None)
  Receive Date: 20130911
  Receipt Date: 20130911
  Transmission Date: 20140515
  Serious: No
  Sender: FDA-Public Use
  Company Number: None

PATIENT
  Age: 50 Year
  Sex: Female
  Weight: 106.6 kg

DRUGS (1)
  1. BYDUREON [Suspect]
     Route: 058
     Dates: start: 20130514

REACTIONS (7)
  - Injection site discolouration [None]
  - Injection site erythema [None]
  - Injection site swelling [None]
  - Injection site pain [None]
  - Injection site pain [None]
  - Injection site warmth [None]
  - No therapeutic response [None]
